FAERS Safety Report 6207265-4 (Version None)
Quarter: 2009Q2

REPORT INFORMATION
  Report Type: 
  Country: None (occurrence: None)
  Receive Date: 20090528
  Receipt Date: 20090513
  Transmission Date: 20091009
  Serious: Yes (Death, Life-Threatening)
  Sender: FDA-Public Use
  Company Number: JP-ABBOTT-09P-087-0575777-00

PATIENT
  Age: 69 Year
  Sex: Male

DRUGS (2)
  1. LEUPLIN SR FOR INJECTION 11.25 MG [Suspect]
     Indication: PROSTATE CANCER STAGE II
     Route: 058
     Dates: start: 20070510, end: 20090312
  2. CASODEX [Concomitant]
     Indication: PROSTATE CANCER STAGE II
     Route: 048
     Dates: start: 20070510, end: 20071206

REACTIONS (8)
  - BLOOD BILIRUBIN INCREASED [None]
  - BLOOD CREATININE INCREASED [None]
  - COLON CANCER RECURRENT [None]
  - HEPATIC FUNCTION ABNORMAL [None]
  - MALIGNANT ASCITES [None]
  - METASTASES TO LUNG [None]
  - OEDEMA [None]
  - PLEURAL EFFUSION [None]
